FAERS Safety Report 9585856 (Version 1)
Quarter: 2013Q4

REPORT INFORMATION
  Report Type: Spontaneous
  Country: US (occurrence: None)
  Receive Date: 20131002
  Receipt Date: 20131002
  Transmission Date: 20140711
  Serious: Yes (Hospitalization)
  Sender: FDA-Public Use
  Company Number: None

PATIENT
  Age: 73 Year
  Sex: Male
  Weight: 89 kg

DRUGS (9)
  1. AMIODARONE [Suspect]
     Indication: ATRIAL FIBRILLATION
     Route: 048
     Dates: start: 20100222, end: 20130909
  2. ASA [Concomitant]
  3. BYSTOLIC [Concomitant]
  4. WARFARIN [Concomitant]
  5. EZETIMIBE [Concomitant]
  6. FERROUS SULFATE [Concomitant]
  7. LISINOPRIL [Concomitant]
  8. OMEPRAZOLE [Concomitant]
  9. RANOLAZINE [Concomitant]

REACTIONS (7)
  - Decreased appetite [None]
  - Nausea [None]
  - Retching [None]
  - Diarrhoea [None]
  - International normalised ratio increased [None]
  - Hepatotoxicity [None]
  - Hyperthyroidism [None]
